FAERS Safety Report 24376769 (Version 1)
Quarter: 2024Q3

REPORT INFORMATION
  Report Type: Spontaneous
  Country: US (occurrence: US)
  Receive Date: 20240930
  Receipt Date: 20240930
  Transmission Date: 20241017
  Serious: Yes (Death, Life-Threatening, Other)
  Sender: DR REDDYS
  Company Number: US-DRL-USA-LIT/USA/24/0014160

PATIENT
  Age: 55 Year
  Sex: Male

DRUGS (2)
  1. MINOCYCLINE [Suspect]
     Active Substance: MINOCYCLINE HYDROCHLORIDE
     Indication: Osteomyelitis chronic
  2. SULFAMETHOXAZOLE\TRIMETHOPRIM [Suspect]
     Active Substance: SULFAMETHOXAZOLE\TRIMETHOPRIM
     Indication: Osteomyelitis chronic

REACTIONS (10)
  - Drug-induced liver injury [Fatal]
  - Anaemia [Unknown]
  - Acute kidney injury [Unknown]
  - Thrombocytopenia [Unknown]
  - Sepsis [Unknown]
  - Metabolic encephalopathy [Unknown]
  - Hepatic fibrosis [Unknown]
  - Hepatitis cholestatic [Unknown]
  - Respiratory failure [Unknown]
  - Condition aggravated [Unknown]
